FAERS Safety Report 7564720-2 (Version None)
Quarter: 2011Q2

REPORT INFORMATION
  Report Type: 
  Country: None (occurrence: None)
  Receive Date: 20110622
  Receipt Date: 20100928
  Transmission Date: 20111010
  Serious: Yes (Death)
  Sender: FDA-Public Use
  Company Number: US-MYLANLABS-2010S1017553

PATIENT
  Age: 54 Year
  Sex: Female

DRUGS (7)
  1. ATIVAN [Concomitant]
  2. CLOZAPINE [Suspect]
     Route: 048
  3. DEPAKOTE ER [Concomitant]
  4. CLOZAPINE [Suspect]
     Route: 048
  5. MIRALAX [Concomitant]
  6. PRILOSEC [Concomitant]
  7. COLACE [Concomitant]

REACTIONS (1)
  - DEATH [None]
